FAERS Safety Report 7819614-1 (Version None)
Quarter: 2011Q4

REPORT INFORMATION
  Report Type: 
  Country: None (occurrence: None)
  Receive Date: 20111018
  Receipt Date: 20111018
  Transmission Date: 20120403
  Serious: Yes (Other)
  Sender: FDA-Public Use
  Company Number: None

PATIENT
  Age: 76 Year
  Sex: Male
  Weight: 81.646 kg

DRUGS (1)
  1. XALATAN [Suspect]
     Indication: INTRAOCULAR PRESSURE INCREASED
     Dosage: ONE DROP IN EACH EYE
     Route: 047
     Dates: start: 20110817, end: 20110923

REACTIONS (1)
  - PRODUCT SUBSTITUTION ISSUE [None]
